FAERS Safety Report 21410560 (Version 1)
Quarter: 2022Q4

REPORT INFORMATION
  Report Type: Report from Study
  Country: FR (occurrence: FR)
  Receive Date: 20221005
  Receipt Date: 20221005
  Transmission Date: 20230112
  Serious: Yes (Death, Hospitalization)
  Sender: FDA-Public Use
  Company Number: FR-MYLANLABS-2022M1110417

PATIENT
  Age: 8 Decade

DRUGS (1)
  1. PREDNISONE [Suspect]
     Active Substance: PREDNISONE
     Indication: Glioblastoma
     Dosage: 20 MILLIGRAM, QD
     Route: 065

REACTIONS (1)
  - COVID-19 pneumonia [Fatal]
